FAERS Safety Report 20465992 (Version 1)
Quarter: 2022Q1

REPORT INFORMATION
  Report Type: Other
  Country: US (occurrence: None)
  Receive Date: 20220212
  Receipt Date: 20220212
  Transmission Date: 20220423
  Serious: No
  Sender: FDA-Public Use
  Company Number: US-ROCHE-3021490

PATIENT
  Sex: Female

DRUGS (1)
  1. OCREVUS [Suspect]
     Active Substance: OCRELIZUMAB
     Indication: Multiple sclerosis
     Dosage: 300MG INITIAL INFUSE, REPEAT IN 2WKS, BEGIN 600MG
     Route: 042
     Dates: start: 20200113

REACTIONS (1)
  - COVID-19 [Unknown]
